FAERS Safety Report 8516270-4 (Version None)
Quarter: 2012Q3

REPORT INFORMATION
  Report Type: 
  Country: None (occurrence: None)
  Receive Date: 20120717
  Receipt Date: 20120627
  Transmission Date: 20120928
  Serious: Yes (Hospitalization)
  Sender: FDA-Public Use
  Company Number: CHPA2012US015086

PATIENT
  Age: 86 Year
  Sex: Female

DRUGS (5)
  1. PREDNISONE [Concomitant]
  2. PREVACID 24 HR [Suspect]
     Indication: GASTROOESOPHAGEAL REFLUX DISEASE
     Dosage: 15 MG, QD
     Route: 048
     Dates: start: 20090101
  3. PLAVIX [Concomitant]
  4. PREVACID 24 HR [Suspect]
     Dosage: 15 MG, EVERY OTHER DAY
     Route: 048
  5. GAS-X CHEWABLE TABLETS UNKNOWN [Suspect]
     Indication: FLATULENCE
     Dosage: 1 DF, OCCASIONALLY
     Route: 048

REACTIONS (7)
  - MYOCARDIAL INFARCTION [None]
  - ARTERIAL OCCLUSIVE DISEASE [None]
  - MALAISE [None]
  - FIBROMYALGIA [None]
  - VOMITING [None]
  - PAIN IN EXTREMITY [None]
  - HEADACHE [None]
